FAERS Safety Report 5758914-6 (Version None)
Quarter: 2008Q2

REPORT INFORMATION
  Report Type: 
  Country: None (occurrence: None)
  Receive Date: 20080603
  Receipt Date: 20080603
  Transmission Date: 20081010
  Serious: Yes (Death)
  Sender: FDA-Public Use
  Company Number: None

PATIENT
  Age: 16 Year
  Sex: Male
  Weight: 75.2971 kg

DRUGS (3)
  1. SINGULAIR [Suspect]
     Indication: ASTHMA
     Dosage: 10MG DAILY AS NEEDED
     Dates: start: 20031013, end: 20060821
  2. ADVAIR DISKUS 100/50 [Concomitant]
  3. ALBUTERAL [Concomitant]

REACTIONS (1)
  - COMPLETED SUICIDE [None]
